FAERS Safety Report 13679279 (Version 1)
Quarter: 2017Q2

REPORT INFORMATION
  Report Type: Spontaneous
  Country: FR (occurrence: FR)
  Receive Date: 20170622
  Receipt Date: 20170622
  Transmission Date: 20170830
  Serious: Yes (Hospitalization)
  Sender: FDA-Public Use
  Company Number: FR-PFIZER INC-2017267723

PATIENT
  Age: 43 Year
  Sex: Female

DRUGS (2)
  1. TRAMADOL MYLAN [Suspect]
     Active Substance: TRAMADOL
     Indication: PAIN
     Dosage: 50 MG, 4X/DAY
     Route: 048
     Dates: start: 20170523, end: 20170525
  2. SOLU-MEDROL [Suspect]
     Active Substance: METHYLPREDNISOLONE SODIUM SUCCINATE
     Indication: PAIN
     Dosage: 40 MG, 2X/DAY
     Route: 030
     Dates: start: 20170523, end: 20170525

REACTIONS (1)
  - Amnesia [Recovered/Resolved]

NARRATIVE: CASE EVENT DATE: 20170525
